FAERS Safety Report 8455386-8 (Version None)
Quarter: 2012Q2

REPORT INFORMATION
  Report Type: 
  Country: None (occurrence: None)
  Receive Date: 20120614
  Receipt Date: 20120603
  Transmission Date: 20120825
  Serious: Yes (Other)
  Sender: FDA-Public Use
  Company Number: 2012060014

PATIENT
  Age: 59 Year
  Sex: Female
  Weight: 65.7716 kg

DRUGS (3)
  1. ALVESCO [Concomitant]
  2. PULMICORT [Concomitant]
  3. TRILYTE [Suspect]
     Indication: FAECALOMA
     Dosage: ORAL
     Route: 048
     Dates: start: 20120602, end: 20120603

REACTIONS (8)
  - PRURITUS [None]
  - ABDOMINAL PAIN UPPER [None]
  - NAUSEA [None]
  - RASH ERYTHEMATOUS [None]
  - BLISTER [None]
  - DIARRHOEA [None]
  - ASTHMA [None]
  - URTICARIA [None]
